FAERS Safety Report 14599835 (Version 3)
Quarter: 2018Q1

REPORT INFORMATION
  Report Type: Other
  Country: DE (occurrence: DE)
  Receive Date: 20180305
  Receipt Date: 20180322
  Transmission Date: 20180509
  Serious: Yes (Life-Threatening, Hospitalization)
  Sender: FDA-Public Use
  Company Number: DE-CELLTRION INC.-2018DE018228

PATIENT

DRUGS (5)
  1. NOXAFIL [Concomitant]
     Active Substance: POSACONAZOLE
  2. INFLIXIMAB (UNKNOWN) [Suspect]
     Active Substance: INFLIXIMAB
     Indication: ACUTE GRAFT VERSUS HOST DISEASE
     Dosage: 710 MG
     Route: 042
     Dates: start: 20171117, end: 20171117
  3. URBASON                            /00049601/ [Concomitant]
     Active Substance: METHYLPREDNISOLONE
  4. CICLOSPORIN A [Concomitant]
     Active Substance: CYCLOSPORINE
     Indication: ACUTE GRAFT VERSUS HOST DISEASE
     Dosage: 100 MG, EVERY DAY
     Route: 042
     Dates: start: 201706
  5. ACICLOVIR [Concomitant]
     Active Substance: ACYCLOVIR

REACTIONS (7)
  - Resuscitation [Unknown]
  - Bundle branch block right [Unknown]
  - Ventricular tachycardia [Unknown]
  - Arteriospasm coronary [Unknown]
  - Acute myocardial infarction [Unknown]
  - Off label use [Unknown]
  - Intensive care [Unknown]

NARRATIVE: CASE EVENT DATE: 20171122
